FAERS Safety Report 10935374 (Version 1)
Quarter: 2015Q1

REPORT INFORMATION
  Report Type: Spontaneous
  Country: JP (occurrence: JP)
  Receive Date: 20150320
  Receipt Date: 20150320
  Transmission Date: 20150721
  Serious: Yes (Life-Threatening, Other)
  Sender: FDA-Public Use
  Company Number: JP-ACTAVIS-2015-05051

PATIENT
  Age: 73 Year
  Sex: Male

DRUGS (8)
  1. OXALIPLATIN (UNKNOWN) [Suspect]
     Active Substance: OXALIPLATIN
     Indication: METASTASES TO LIVER
     Dosage: 68 MG/M2, CYCLICAL
     Route: 040
     Dates: start: 200809
  2. 5-FU                               /00098801/ [Suspect]
     Active Substance: FLUOROURACIL
     Indication: METASTASES TO LIVER
     Dosage: 600 MG/M2, CYCLICAL; 22 H INFUSION
     Route: 050
     Dates: start: 200808
  3. OXALIPLATIN (UNKNOWN) [Suspect]
     Active Substance: OXALIPLATIN
     Indication: ADENOCARCINOMA OF COLON
     Dosage: 85 MG/M2, CYCLICAL
     Route: 040
     Dates: start: 200808
  4. BEVACIZUMAB [Suspect]
     Active Substance: BEVACIZUMAB
     Indication: ADENOCARCINOMA OF COLON
     Dosage: 5 MG/KG, CYCLICAL
     Route: 065
     Dates: start: 200808
  5. 5-FU                               /00098801/ [Suspect]
     Active Substance: FLUOROURACIL
     Dosage: 400 MG/M2, CYCLICAL
     Route: 040
     Dates: start: 200809
  6. 5-FU                               /00098801/ [Suspect]
     Active Substance: FLUOROURACIL
     Dosage: 600 MG/M2, CYCLICAL; 22 H INFUSION
     Route: 050
     Dates: start: 200809
  7. BEVACIZUMAB [Suspect]
     Active Substance: BEVACIZUMAB
     Indication: METASTASES TO LIVER
     Dosage: UNK
     Route: 065
     Dates: start: 200809
  8. 5-FU                               /00098801/ [Suspect]
     Active Substance: FLUOROURACIL
     Indication: ADENOCARCINOMA OF COLON
     Dosage: 400 MG/M2, CYCLICAL
     Route: 040
     Dates: start: 200808

REACTIONS (7)
  - Acute respiratory distress syndrome [Recovered/Resolved]
  - Type IV hypersensitivity reaction [Recovered/Resolved]
  - Neutropenia [Unknown]
  - Haemoptysis [Recovered/Resolved]
  - Leukopenia [Unknown]
  - Malignant neoplasm progression [None]
  - Nausea [Unknown]
